FAERS Safety Report 8111722-3 (Version None)
Quarter: 2012Q1

REPORT INFORMATION
  Report Type: 
  Country: None (occurrence: None)
  Receive Date: 20120203
  Receipt Date: 20120131
  Transmission Date: 20120608
  Serious: Yes (Death, Life-Threatening, Hospitalization)
  Sender: FDA-Public Use
  Company Number: NL-GENZYME-CLOF-1001873

PATIENT
  Sex: Male
  Weight: 83 kg

DRUGS (5)
  1. EVOLTRA [Suspect]
     Indication: MYELODYSPLASTIC SYNDROME
     Dosage: 19 MG, UNK
     Route: 042
     Dates: start: 20111021, end: 20111025
  2. METRONIDAZOLE [Concomitant]
     Indication: ANTI-INFECTIVE THERAPY
     Dosage: 500 MG X 3
     Route: 048
     Dates: start: 20111025, end: 20111031
  3. CYTARABINE [Suspect]
     Indication: MYELODYSPLASTIC SYNDROME
     Dosage: 1900 MG X 2
     Route: 042
     Dates: start: 20111021, end: 20111026
  4. PREDNICEN-M [Concomitant]
     Indication: SKIN DISORDER
     Dosage: 10 MG X 2
     Route: 048
     Dates: start: 20111023, end: 20111031
  5. AMSACRINE [Suspect]
     Indication: MYELODYSPLASTIC SYNDROME
     Dosage: 170 MG (DECREASED DOSE DUE TO PRE-EXISTING RENAL INSUFFICIENCY)
     Route: 042
     Dates: start: 20111024, end: 20111026

REACTIONS (1)
  - CARDIAC FAILURE [None]
